FAERS Safety Report 18796596 (Version 1)
Quarter: 2021Q1

REPORT INFORMATION
  Report Type: Spontaneous
  Country: US (occurrence: US)
  Receive Date: 20210127
  Receipt Date: 20210127
  Transmission Date: 20210419
  Serious: Yes (Hospitalization)
  Sender: FDA-Public Use
  Company Number: 2020SGN04300

PATIENT
  Sex: Female

DRUGS (2)
  1. CAPECITABINE. [Suspect]
     Active Substance: CAPECITABINE
     Dosage: 500MG ?? 4 QAM AND 3 QPM
  2. TUKYSA [Suspect]
     Active Substance: TUCATINIB
     Indication: HER2 POSITIVE BREAST CANCER
     Dosage: 150 MG, UNK
     Route: 048

REACTIONS (4)
  - Hospice care [Unknown]
  - Blister [Unknown]
  - COVID-19 [Unknown]
  - Nausea [Unknown]
